FAERS Safety Report 9812944 (Version 3)
Quarter: 2014Q1

REPORT INFORMATION
  Report Type: Spontaneous
  Country: US (occurrence: US)
  Receive Date: 20140113
  Receipt Date: 20140117
  Transmission Date: 20141002
  Serious: Yes (Death)
  Sender: FDA-Public Use
  Company Number: US-PFIZER INC-2014006032

PATIENT
  Age: 67 Year
  Sex: Female

DRUGS (3)
  1. KETOROLAC [Suspect]
     Dosage: UNK
  2. METFORMIN [Suspect]
     Dosage: UNK
  3. ORPHENADRINE [Suspect]
     Dosage: UNK

REACTIONS (1)
  - Death [Fatal]
